FAERS Safety Report 8493891-9 (Version None)
Quarter: 2012Q3

REPORT INFORMATION
  Report Type: 
  Country: None (occurrence: None)
  Receive Date: 20120707
  Receipt Date: 20120626
  Transmission Date: 20120928
  Serious: Yes (Other)
  Sender: FDA-Public Use
  Company Number: US-BAYER-2012-052600

PATIENT
  Age: 72 Year
  Sex: Male
  Weight: 131.54 kg

DRUGS (11)
  1. CRESTOR [Concomitant]
  2. CLONIDINE [Concomitant]
     Indication: HYPERTENSION
  3. HYDROCHLOROTHIAZIDE [Concomitant]
     Indication: HYPERTENSION
  4. XARELTO [Interacting]
     Indication: CEREBROVASCULAR ACCIDENT PROPHYLAXIS
  5. ASPIRIN [Suspect]
  6. CARVEDILOL [Concomitant]
  7. HYDROCHLOROTHIAZIDE [Concomitant]
  8. ISOSORBIDE MONONITRATE [Concomitant]
  9. XARELTO [Interacting]
     Indication: ATRIAL FIBRILLATION
     Dosage: 20 MG, UNK
     Route: 048
     Dates: start: 20120417, end: 20120521
  10. LISINOPRIL [Concomitant]
  11. AMLODIPINE [Concomitant]

REACTIONS (3)
  - URINARY TRACT INFECTION [None]
  - CHROMATURIA [None]
  - BACK PAIN [None]
